FAERS Safety Report 6830183-5 (Version None)
Quarter: 2010Q3

REPORT INFORMATION
  Report Type: 
  Country: None (occurrence: None)
  Receive Date: 20100711
  Receipt Date: 20100513
  Transmission Date: 20110219
  Serious: No
  Sender: FDA-Public Use
  Company Number: US-ALLERGAN-1006363US

PATIENT
  Age: 48 Year
  Sex: Female

DRUGS (2)
  1. LATISSE [Suspect]
     Indication: GROWTH OF EYELASHES
     Dosage: DEPENDS ON MOISURE ON BRUSH
     Route: 061
  2. EYE DROPS [Concomitant]
     Indication: SEASONAL ALLERGY

REACTIONS (5)
  - EYE PRURITUS [None]
  - INCORRECT DOSE ADMINISTERED [None]
  - MADAROSIS [None]
  - TRICHORRHEXIS [None]
  - WRONG TECHNIQUE IN DRUG USAGE PROCESS [None]
